FAERS Safety Report 20442472 (Version 1)
Quarter: 2022Q1

REPORT INFORMATION
  Report Type: Spontaneous
  Country: KZ (occurrence: KZ)
  Receive Date: 20220208
  Receipt Date: 20220208
  Transmission Date: 20220424
  Serious: Yes (Other)
  Sender: FDA-Public Use
  Company Number: KZ-NOVARTISPH-NVSC2022KZ025872

PATIENT
  Sex: Female

DRUGS (1)
  1. ZYKADIA [Suspect]
     Active Substance: CERITINIB
     Indication: Hepatic cancer
     Dosage: UNK
     Route: 065
     Dates: start: 202102

REACTIONS (6)
  - Metastases to central nervous system [Unknown]
  - Metastases to bone [Unknown]
  - Blood urea increased [Unknown]
  - Bone pain [Unknown]
  - Blood creatinine increased [Unknown]
  - Product use in unapproved indication [Unknown]

NARRATIVE: CASE EVENT DATE: 20210201
